FAERS Safety Report 8828678 (Version 1)
Quarter: 2012Q4

REPORT INFORMATION
  Report Type: 
  Country: GB (occurrence: GB)
  Receive Date: 20121005
  Receipt Date: 20121005
  Transmission Date: 20130627
  Serious: Yes (Disabling)
  Sender: FDA-Public Use
  Company Number: GB-ASTELLAS-2012EU007028

PATIENT
  Sex: Female
  Weight: 74 kg

DRUGS (3)
  1. VESICARE [Suspect]
     Indication: URINARY INCONTINENCE
     Dosage: 10 mg, UID/QD
     Route: 048
     Dates: start: 20100111
  2. BACLOFEN [Concomitant]
     Indication: MUSCLE SPASMS
     Dosage: 10 mg, UID/QD
     Route: 048
     Dates: start: 20090218
  3. DICLOFENAC [Concomitant]
     Indication: PAIN
     Dosage: 75 mg, UID/QD
     Route: 048
     Dates: start: 19970221

REACTIONS (2)
  - Atrial fibrillation [Recovering/Resolving]
  - Tachycardia [Recovering/Resolving]
